FAERS Safety Report 9510423 (Version 3)
Quarter: 2013Q4

REPORT INFORMATION
  Report Type: Spontaneous
  Country: US (occurrence: US)
  Receive Date: 20130909
  Receipt Date: 20131008
  Transmission Date: 20140711
  Serious: Yes (Other)
  Sender: FDA-Public Use
  Company Number: US-TEVA-430663USA

PATIENT
  Age: 33 Year
  Sex: Female
  Weight: 85.81 kg

DRUGS (2)
  1. PARAGARD 380A [Suspect]
     Indication: CONTRACEPTION
     Route: 015
     Dates: start: 20071016, end: 20130828
  2. PHENOBARBITAL [Concomitant]
     Indication: EPILEPSY

REACTIONS (4)
  - Embedded device [Not Recovered/Not Resolved]
  - Device breakage [Not Recovered/Not Resolved]
  - Vaginal haemorrhage [Unknown]
  - Pain [Unknown]
